FAERS Safety Report 8578548 (Version 25)
Quarter: 2014Q4

REPORT INFORMATION
  Report Type: Report from Study
  Country: CA (occurrence: CA)
  Receive Date: 20120524
  Receipt Date: 20141021
  Transmission Date: 20150529
  Serious: Yes (Hospitalization, Other)
  Sender: FDA-Public Use
  Company Number: PHHY2010CA75655

PATIENT
  Age: 54 Year
  Sex: Male

DRUGS (11)
  1. SANDOSTATIN LAR DEPOT [Suspect]
     Active Substance: OCTREOTIDE ACETATE
     Dosage: 20 MG, QMO
     Route: 030
  2. SANDOSTATIN LAR DEPOT [Suspect]
     Active Substance: OCTREOTIDE ACETATE
     Dosage: 30 MG, QMO
     Route: 030
     Dates: start: 201203
  3. APO-CLONIDINE [Concomitant]
     Dosage: 0.1 MG, PRN
     Route: 065
  4. FRAGMIN [Concomitant]
     Active Substance: DALTEPARIN SODIUM
     Dosage: UNK
     Route: 065
  5. SANDOSTATIN LAR DEPOT [Suspect]
     Active Substance: OCTREOTIDE ACETATE
     Indication: CARCINOID TUMOUR OF THE PANCREAS
     Dosage: 30 MG, QMO
     Route: 030
     Dates: start: 20101105
  6. SANDOSTATIN LAR DEPOT [Suspect]
     Active Substance: OCTREOTIDE ACETATE
     Dosage: 50 MG, QMO
     Route: 030
  7. SANDOSTATIN LAR DEPOT [Suspect]
     Active Substance: OCTREOTIDE ACETATE
     Dosage: 40 MG, QMO
     Route: 030
  8. LOVENOX [Concomitant]
     Active Substance: ENOXAPARIN SODIUM
     Indication: THROMBOSIS
     Dosage: 180 MG, UNK
     Route: 058
  9. SANDOSTATIN LAR DEPOT [Suspect]
     Active Substance: OCTREOTIDE ACETATE
     Dosage: 20 MG, EVERY 4 WEEKS
     Route: 030
  10. SANDOSTATIN LAR DEPOT [Suspect]
     Active Substance: OCTREOTIDE ACETATE
     Dosage: 30 MG, QMO
     Route: 030
     Dates: start: 20110322
  11. SANDOSTATIN LAR DEPOT [Suspect]
     Active Substance: OCTREOTIDE ACETATE
     Dosage: 20 MG, EVERY 4 WEEKS
     Route: 030

REACTIONS (37)
  - Localised infection [Unknown]
  - Lower limb fracture [Unknown]
  - Gastrointestinal motility disorder [Unknown]
  - Injection site pain [Unknown]
  - Fall [Unknown]
  - Terminal state [Unknown]
  - Malaise [Unknown]
  - Blood pressure increased [Unknown]
  - Weight increased [Unknown]
  - Impaired healing [Unknown]
  - Concussion [Unknown]
  - Tremor [Unknown]
  - Vomiting [Unknown]
  - Hyperglycaemia [Unknown]
  - Thrombosis [Unknown]
  - Arthralgia [Unknown]
  - Blood magnesium decreased [Unknown]
  - Hypokinesia [Unknown]
  - Abdominal pain upper [Unknown]
  - Renal disorder [Unknown]
  - Fluid retention [Unknown]
  - Weight decreased [Unknown]
  - Infection [Unknown]
  - Wound [Unknown]
  - Abasia [Unknown]
  - Nausea [Recovered/Resolved]
  - Hypoglycaemia [Unknown]
  - Hip fracture [Unknown]
  - Gastric disorder [Unknown]
  - Oedema peripheral [Not Recovered/Not Resolved]
  - Metastases to liver [Unknown]
  - Lung disorder [Unknown]
  - Movement disorder [Unknown]
  - Pyrexia [Unknown]
  - Dyspnoea [Unknown]
  - Diarrhoea [Unknown]
  - Bronchitis [Unknown]

NARRATIVE: CASE EVENT DATE: 20101107
